FAERS Safety Report 5531600-3 (Version None)
Quarter: 2007Q4

REPORT INFORMATION
  Report Type: 
  Country: None (occurrence: None)
  Receive Date: 20071128
  Receipt Date: 20071119
  Transmission Date: 20080405
  Serious: Yes (Hospitalization)
  Sender: FDA-Public Use
  Company Number: GXKR2007GB09954

PATIENT
  Age: 77 Year
  Sex: Female

DRUGS (4)
  1. SIMVASTATIN [Suspect]
     Indication: HYPERCHOLESTEROLAEMIA
     Dosage: 40 MG, QD, ORAL
     Route: 048
     Dates: start: 20041108, end: 20071004
  2. ACETAMINOPHEN [Concomitant]
  3. ATENOLOL [Concomitant]
  4. FLUOXETINE [Concomitant]

REACTIONS (4)
  - HEAD INJURY [None]
  - JOINT DISLOCATION POSTOPERATIVE [None]
  - LOSS OF CONSCIOUSNESS [None]
  - TREATMENT FAILURE [None]
